FAERS Safety Report 17889430 (Version 1)
Quarter: 2020Q2

REPORT INFORMATION
  Report Type: Report from Study
  Country: ES (occurrence: ES)
  Receive Date: 20200612
  Receipt Date: 20200612
  Transmission Date: 20200714
  Serious: Yes (Other)
  Sender: FDA-Public Use
  Company Number: ES-ELI_LILLY_AND_COMPANY-ES202006003376

PATIENT
  Age: 25 Year
  Sex: Female

DRUGS (1)
  1. BARICITINIB [Suspect]
     Active Substance: BARICITINIB
     Indication: RHEUMATOID ARTHRITIS
     Dosage: 4 MG, DAILY
     Route: 048
     Dates: start: 20180122, end: 20180507

REACTIONS (6)
  - Alopecia [Unknown]
  - Nodule [Unknown]
  - Weight increased [Unknown]
  - Aphthous ulcer [Unknown]
  - Abscess oral [Unknown]
  - Cystitis [Unknown]

NARRATIVE: CASE EVENT DATE: 201803
